FAERS Safety Report 10169866 (Version 1)
Quarter: 2014Q2

REPORT INFORMATION
  Report Type: Spontaneous
  Country: CN (occurrence: CN)
  Receive Date: 20140513
  Receipt Date: 20140513
  Transmission Date: 20141212
  Serious: Yes (Hospitalization)
  Sender: FDA-Public Use
  Company Number: CN-BAYER-2014-068027

PATIENT
  Age: 77 Year
  Sex: Male
  Weight: 82 kg

DRUGS (2)
  1. BAYASPIRIN [Suspect]
     Indication: ANTIPLATELET THERAPY
     Dosage: 0.1 G, QD
     Route: 048
     Dates: start: 20131001, end: 20131013
  2. INDAPAMIDE [Concomitant]
     Indication: HYPERTENSION
     Dosage: 2.5 MG, QD
     Route: 048
     Dates: start: 20131001, end: 20131017

REACTIONS (2)
  - Faeces discoloured [Recovering/Resolving]
  - Gastric haemorrhage [Recovering/Resolving]
